FAERS Safety Report 18719316 (Version 1)
Quarter: 2021Q1

REPORT INFORMATION
  Report Type: Spontaneous
  Country: CA (occurrence: CA)
  Receive Date: 20210108
  Receipt Date: 20210108
  Transmission Date: 20210419
  Serious: Yes (Other)
  Sender: FDA-Public Use
  Company Number: CA-PFIZER INC-2021005750

PATIENT
  Age: 64 Year
  Sex: Male

DRUGS (7)
  1. XELJANZ [Suspect]
     Active Substance: TOFACITINIB CITRATE
     Dosage: 5 MG, 2X/DAY
     Dates: start: 201701
  2. ALEVE [Concomitant]
     Active Substance: NAPROXEN SODIUM
  3. PANTOPRAZOLE [Concomitant]
     Active Substance: PANTOPRAZOLE
     Dosage: 40 MG, DAILY
  4. METFORMIN [Concomitant]
     Active Substance: METFORMIN HYDROCHLORIDE
     Dosage: 1 G, 2X/DAY
  5. VITAMIN D NOS [Concomitant]
     Active Substance: VITAMIN D NOS
  6. DILTIAZEM CD [Concomitant]
     Active Substance: DILTIAZEM
     Dosage: 120 MG, DAILY
  7. CANDESARTAN. [Concomitant]
     Active Substance: CANDESARTAN
     Dosage: 16 MG, DAILY

REACTIONS (3)
  - Blood creatine phosphokinase increased [Unknown]
  - Hepatic fibrosis [Unknown]
  - Alanine aminotransferase increased [Unknown]

NARRATIVE: CASE EVENT DATE: 2017
